FAERS Safety Report 7251228-7 (Version None)
Quarter: 2011Q1

REPORT INFORMATION
  Report Type: 
  Country: None (occurrence: None)
  Receive Date: 20110128
  Receipt Date: 20110121
  Transmission Date: 20110831
  Serious: Yes (Other)
  Sender: FDA-Public Use
  Company Number: US-MYLANLABS-2010S1020373

PATIENT
  Age: 35 Year
  Sex: Female

DRUGS (3)
  1. AMNESTEEM [Suspect]
     Route: 048
     Dates: start: 20100930, end: 20101025
  2. ORAL CONTRACEPTIVE NOS [Concomitant]
     Route: 048
  3. MILNACIPRAN [Concomitant]
     Indication: FIBROMYALGIA
     Dosage: SAVELLA (MILNACIPRAN)
     Dates: start: 20100101, end: 20100101

REACTIONS (1)
  - DRUG EXPOSURE DURING PREGNANCY [None]
